FAERS Safety Report 8069711-3 (Version None)
Quarter: 2012Q1

REPORT INFORMATION
  Report Type: 
  Country: None (occurrence: None)
  Receive Date: 20120125
  Receipt Date: 20110329
  Transmission Date: 20120608
  Serious: No
  Sender: FDA-Public Use
  Company Number: US-PFIZER INC-2011US-43588

PATIENT
  Sex: Female

DRUGS (1)
  1. CALAN [Suspect]
     Dosage: 2 TABLETS ONCE IN THE MORNING

REACTIONS (5)
  - OROPHARYNGEAL PAIN [None]
  - HYPERTENSION [None]
  - MEDICATION ERROR [None]
  - REACTION TO DRUG EXCIPIENTS [None]
  - INAPPROPRIATE SCHEDULE OF DRUG ADMINISTRATION [None]
